FAERS Safety Report 7238744-9 (Version None)
Quarter: 2011Q1

REPORT INFORMATION
  Report Type: 
  Country: None (occurrence: None)
  Receive Date: 20110121
  Receipt Date: 20110114
  Transmission Date: 20110831
  Serious: Yes (Hospitalization)
  Sender: FDA-Public Use
  Company Number: US-JNJFOC-20110104519

PATIENT
  Sex: Female
  Weight: 77.11 kg

DRUGS (2)
  1. TOPAMAX [Suspect]
     Indication: MIGRAINE
     Route: 048
  2. IMITREX [Concomitant]
     Indication: MIGRAINE
     Route: 065

REACTIONS (6)
  - DISTURBANCE IN ATTENTION [None]
  - TREATMENT NONCOMPLIANCE [None]
  - SWELLING [None]
  - DYSPHEMIA [None]
  - DRUG INEFFECTIVE [None]
  - DYSARTHRIA [None]
